APPROVED DRUG PRODUCT: CHLORZOXAZONE
Active Ingredient: CHLORZOXAZONE
Strength: 500MG
Dosage Form/Route: TABLET;ORAL
Application: A212254 | Product #001 | TE Code: AA
Applicant: NOVITIUM PHARMA LLC
Approved: Sep 12, 2019 | RLD: No | RS: No | Type: RX